FAERS Safety Report 10249139 (Version 1)
Quarter: 2014Q2

REPORT INFORMATION
  Report Type: Spontaneous
  Country: DK (occurrence: GB)
  Receive Date: 20140620
  Receipt Date: 20140620
  Transmission Date: 20141212
  Serious: Yes (Hospitalization)
  Sender: FDA-Public Use
  Company Number: GB-FRI-1000068323

PATIENT
  Age: 52 Year
  Sex: Female

DRUGS (11)
  1. CITALOPRAM [Suspect]
     Indication: SCHIZOPHRENIA, PARANOID TYPE
     Dosage: 40 MG DAILY
     Route: 048
     Dates: end: 20140324
  2. CITALOPRAM [Suspect]
     Dosage: OVERDOSE: DOSE UNSPECIFIED
     Route: 048
     Dates: start: 20140325, end: 20140325
  3. CITALOPRAM [Suspect]
     Dosage: 40 MG DAILY
     Route: 048
     Dates: start: 201403
  4. CLOZARIL [Suspect]
     Indication: SCHIZOPHRENIA, PARANOID TYPE
     Dosage: 300 MG DAILY
     Route: 048
     Dates: start: 20061031, end: 20140324
  5. CLOZARIL [Suspect]
     Dosage: OVERDOSE: DOSE UNSPECIFIED
     Route: 048
     Dates: start: 20140325, end: 20140325
  6. QUETIAPINE [Suspect]
     Indication: SCHIZOPHRENIA, PARANOID TYPE
     Dosage: 200 MG DAILY
     Route: 048
     Dates: end: 20140324
  7. QUETIAPINE [Suspect]
     Dosage: OVERDOSE: DOSE UNSPECIFIED
     Route: 048
     Dates: start: 20140325, end: 20140325
  8. QUETIAPINE [Suspect]
     Dosage: 200 MG DAILY
     Route: 048
     Dates: start: 201403
  9. VALPROATE SODIUM [Suspect]
     Indication: SCHIZOPHRENIA, PARANOID TYPE
     Dosage: 650 MG DAILY
     Route: 048
     Dates: end: 20140324
  10. VALPROATE SODIUM [Suspect]
     Dosage: OVERDOSE: DOSE UNSPECIFIED
     Route: 048
     Dates: start: 20140325, end: 20140325
  11. VALPROATE SODIUM [Suspect]
     Dosage: 650 MG DAILY
     Route: 048
     Dates: start: 201403

REACTIONS (6)
  - Intentional overdose [Recovered/Resolved]
  - Neutrophil count increased [Recovered/Resolved]
  - Platelet count increased [Unknown]
  - White blood cell count increased [Recovered/Resolved]
  - Insomnia [Unknown]
  - Off label use [Unknown]
